FAERS Safety Report 5671733-4 (Version None)
Quarter: 2008Q1

REPORT INFORMATION
  Report Type: 
  Country: None (occurrence: None)
  Receive Date: 20080314
  Receipt Date: 20080308
  Transmission Date: 20080703
  Serious: Yes (Hospitalization, Other)
  Sender: FDA-Public Use
  Company Number: 2008SP004894

PATIENT
  Age: 45 Year
  Sex: Male

DRUGS (2)
  1. PEG-INTRON [Suspect]
     Indication: HEPATITIS C
     Dates: start: 20040101, end: 20040101
  2. REBETOL [Suspect]
     Indication: HEPATITIS C
     Dosage: PO
     Route: 048
     Dates: start: 20040101, end: 20040101

REACTIONS (9)
  - ANOREXIA [None]
  - ANXIETY [None]
  - BACK PAIN [None]
  - CONFUSIONAL STATE [None]
  - CONTUSION [None]
  - INSOMNIA [None]
  - PARKINSONISM [None]
  - PLATELET COUNT DECREASED [None]
  - RECTAL HAEMORRHAGE [None]
